FAERS Safety Report 10162505 (Version 1)
Quarter: 2014Q2

REPORT INFORMATION
  Report Type: Spontaneous
  Country: CA (occurrence: CA)
  Receive Date: 20140509
  Receipt Date: 20140509
  Transmission Date: 20141212
  Serious: Yes (Other)
  Sender: FDA-Public Use
  Company Number: CA-PFIZER INC-2014124087

PATIENT
  Age: 76 Year
  Sex: Male

DRUGS (1)
  1. CELEBREX [Suspect]
     Indication: ARTHRITIS
     Dosage: UNK
     Dates: end: 201404

REACTIONS (6)
  - Spinal disorder [Unknown]
  - Stomatitis [Recovered/Resolved]
  - Mouth haemorrhage [Recovered/Resolved]
  - Tooth loss [Recovered/Resolved]
  - Loose tooth [Recovered/Resolved]
  - Pain [Not Recovered/Not Resolved]
